FAERS Safety Report 22201953 (Version 1)
Quarter: 2023Q2

REPORT INFORMATION
  Report Type: Spontaneous
  Country: US (occurrence: None)
  Receive Date: 20230411
  Receipt Date: 20230411
  Transmission Date: 20230722
  Serious: Yes (Hospitalization)
  Sender: FDA-Public Use
  Company Number: None

PATIENT
  Sex: Female

DRUGS (15)
  1. IMATINIB MESYLATE [Suspect]
     Active Substance: IMATINIB MESYLATE
     Indication: Gastrointestinal stromal tumour
     Route: 048
     Dates: start: 20210603
  2. ALENDRONATE [Concomitant]
     Active Substance: ALENDRONATE SODIUM
  3. AMLODIPINE [Concomitant]
     Active Substance: AMLODIPINE BESYLATE
  4. ATENOLOL [Concomitant]
     Active Substance: ATENOLOL
  5. CRANBERRY [Concomitant]
     Active Substance: CRANBERRY
  6. FAMOTIDINE [Concomitant]
     Active Substance: FAMOTIDINE
  7. FLECAINIDE [Concomitant]
     Active Substance: FLECAINIDE
  8. FUROSEMIDE [Concomitant]
     Active Substance: FUROSEMIDE
  9. IRBESAR/HCTZ [Concomitant]
  10. MAGNESIUM [Concomitant]
     Active Substance: MAGNESIUM
  11. MULTIVITAMIN LIQ [Concomitant]
  12. POTASSIUM [Concomitant]
     Active Substance: POTASSIUM
  13. SENNA/DSS [Concomitant]
  14. TYLENOL [Concomitant]
     Active Substance: ACETAMINOPHEN
  15. WARFARIN [Concomitant]
     Active Substance: WARFARIN

REACTIONS (2)
  - Diarrhoea [None]
  - Therapy interrupted [None]
